FAERS Safety Report 13665750 (Version 9)
Quarter: 2019Q2

REPORT INFORMATION
  Report Type: Spontaneous
  Country: US (occurrence: US)
  Receive Date: 20170619
  Receipt Date: 20190621
  Transmission Date: 20190711
  Serious: Yes (Hospitalization, Other)
  Sender: FDA-Public Use
  Company Number: US-PFIZER INC-2017262908

PATIENT
  Age: 65 Year
  Sex: Female
  Weight: 136 kg

DRUGS (6)
  1. LYRICA [Suspect]
     Active Substance: PREGABALIN
     Indication: NEUROPATHY PERIPHERAL
     Dosage: 75 MG, 3X/DAY
     Route: 048
     Dates: start: 2017, end: 20170813
  2. HYDROCODONE [Concomitant]
     Active Substance: HYDROCODONE
     Indication: PAIN
     Dosage: 7.5 MG, AS NEEDED (EVERY 4 HOURS)
     Route: 048
  3. LYRICA [Suspect]
     Active Substance: PREGABALIN
     Indication: DIABETIC NEUROPATHY
     Dosage: 75 MG, 3X/DAY
     Route: 048
     Dates: start: 201506, end: 20170611
  4. CARISOPRODOL. [Concomitant]
     Active Substance: CARISOPRODOL
     Indication: MUSCLE SPASMS
     Dosage: 150 MG, UNK
  5. LYRICA [Suspect]
     Active Substance: PREGABALIN
     Dosage: 75 MG, 3X/DAY
     Route: 048
     Dates: start: 2018
  6. WARFARIN [Concomitant]
     Active Substance: WARFARIN
     Indication: THROMBOSIS PROPHYLAXIS
     Dosage: 7 MG, DAILY
     Route: 048
     Dates: start: 2016

REACTIONS (21)
  - Fatigue [Unknown]
  - Pain in extremity [Unknown]
  - Influenza [Unknown]
  - Loss of consciousness [Unknown]
  - Feeling abnormal [Unknown]
  - Pain [Unknown]
  - Product dose omission [Unknown]
  - Insomnia [Unknown]
  - Ear discomfort [Unknown]
  - Memory impairment [Unknown]
  - Nasopharyngitis [Unknown]
  - Paraesthesia [Unknown]
  - Malaise [Unknown]
  - Thrombosis [Not Recovered/Not Resolved]
  - Pneumonia [Not Recovered/Not Resolved]
  - Anaemia [Not Recovered/Not Resolved]
  - Therapeutic product effect decreased [Unknown]
  - Restlessness [Unknown]
  - Burning sensation [Unknown]
  - Fall [Unknown]
  - Ear infection [Unknown]

NARRATIVE: CASE EVENT DATE: 2016
